FAERS Safety Report 12504315 (Version 6)
Quarter: 2016Q3

REPORT INFORMATION
  Report Type: Spontaneous
  Country: US (occurrence: US)
  Receive Date: 20160628
  Receipt Date: 20160926
  Transmission Date: 20161109
  Serious: Yes (Other)
  Sender: FDA-Public Use
  Company Number: US-PFIZER INC-2016314897

PATIENT
  Age: 41 Year
  Sex: Female

DRUGS (11)
  1. LIDOCAINE HCL [Suspect]
     Active Substance: LIDOCAINE HYDROCHLORIDE
     Indication: ANALGESIC THERAPY
     Dosage: 10 ML, UNK
     Route: 019
     Dates: start: 20160613
  2. CYTOTEC [Concomitant]
     Active Substance: MISOPROSTOL
     Indication: INDUCTION OF CERVIX RIPENING
     Dosage: 200 UG, UNK (LAST NIGHT)
     Dates: start: 20160612
  3. IBUPROFEN. [Concomitant]
     Active Substance: IBUPROFEN
     Indication: ANALGESIC THERAPY
     Dosage: 600 MG, UNK
     Dates: start: 20160612
  4. EPINEPHRINE/LIDOCAINE HYDROCHLORIDE [Suspect]
     Active Substance: EPINEPHRINE\LIDOCAINE HYDROCHLORIDE
     Dosage: UNK
  5. NORCO [Concomitant]
     Active Substance: ACETAMINOPHEN\HYDROCODONE BITARTRATE
     Indication: ANALGESIC THERAPY
     Dosage: UNK, (HYDROCODONE:5, ACETAMINOPHEN: 325)
     Dates: start: 20160613
  6. VALIUM [Concomitant]
     Active Substance: DIAZEPAM
     Indication: ANXIOLYTIC THERAPY
     Dosage: 10 MG, UNK
     Dates: start: 20160613
  7. TORADOL [Concomitant]
     Active Substance: KETOROLAC TROMETHAMINE
     Indication: ANALGESIC THERAPY
     Dosage: 60 MG, UNK
     Route: 030
     Dates: start: 20160613
  8. PHENARGAN [Concomitant]
     Dosage: 25 MG, UNK
     Dates: start: 20160613
  9. LIDOCAINE HCL [Suspect]
     Active Substance: LIDOCAINE HYDROCHLORIDE
     Dosage: UNK
     Dates: start: 20160613, end: 20160613
  10. B+O [Concomitant]
     Indication: ANALGESIC THERAPY
     Dosage: UNK
     Dates: start: 20160613
  11. EPINEPHRINE/LIDOCAINE HYDROCHLORIDE [Suspect]
     Active Substance: EPINEPHRINE\LIDOCAINE HYDROCHLORIDE
     Dosage: UNK

REACTIONS (2)
  - Partial seizures [Recovered/Resolved]
  - Seizure [Recovered/Resolved]

NARRATIVE: CASE EVENT DATE: 20160613
